FAERS Safety Report 21790946 (Version 1)
Quarter: 2022Q4

REPORT INFORMATION
  Report Type: Report from Study
  Country: US (occurrence: US)
  Receive Date: 20221228
  Receipt Date: 20221228
  Transmission Date: 20230113
  Serious: Yes (Other)
  Sender: FDA-Public Use
  Company Number: US-TAIHO-2022-003253

PATIENT
  Age: 61 Year
  Sex: Male
  Weight: 84.37 kg

DRUGS (18)
  1. FUTIBATINIB [Suspect]
     Active Substance: FUTIBATINIB
     Indication: Rectal cancer
     Dosage: CYCLE 1.
     Route: 048
     Dates: start: 20221123, end: 20221207
  2. BINIMETINIB [Suspect]
     Active Substance: BINIMETINIB
     Indication: Rectal cancer
     Dosage: LEAD IN PHASE: 16/NOV/2022-22/NOV/2022; CYCLE 1: START DATE 23/NOV/2022
     Route: 048
     Dates: start: 20221116
  3. ACETAZOLAMIDE [Concomitant]
     Active Substance: ACETAZOLAMIDE
     Indication: Hyperphosphataemia
     Route: 048
     Dates: start: 20221207
  4. CALCIUM ACETATE [Concomitant]
     Active Substance: CALCIUM ACETATE
     Indication: Hyperphosphataemia
     Route: 048
     Dates: start: 20221205
  5. PROCHLORPERAZINE [Concomitant]
     Active Substance: PROCHLORPERAZINE
     Indication: Nausea
     Dosage: Q6 AS NECESSARY
     Route: 048
     Dates: start: 20221123
  6. ONDANSETRON [Concomitant]
     Active Substance: ONDANSETRON
     Indication: Nausea
     Dosage: Q8 AS NECESSARY
     Route: 048
     Dates: start: 20221116
  7. OXYCODONE [Concomitant]
     Active Substance: OXYCODONE
     Indication: Pain
     Dosage: IMMEDIATE RELEASE
     Route: 048
  8. OXYCODONE [Concomitant]
     Active Substance: OXYCODONE
     Route: 048
     Dates: start: 20221110
  9. TRAZODONE [Concomitant]
     Active Substance: TRAZODONE HYDROCHLORIDE
     Indication: Insomnia
     Route: 048
     Dates: start: 20221010
  10. ATORVASTATIN [Concomitant]
     Active Substance: ATORVASTATIN
     Indication: Blood cholesterol increased
     Route: 048
     Dates: start: 20220930
  11. CALCIUM\CHOLECALCIFEROL [Concomitant]
     Active Substance: CALCIUM\CHOLECALCIFEROL
     Indication: Vitamin supplementation
     Dosage: 500MG-200MG UNIT
     Route: 048
     Dates: start: 20220928
  12. DULOXETINE [Concomitant]
     Active Substance: DULOXETINE
     Indication: Depression
     Route: 048
     Dates: start: 20220707
  13. DULOXETINE [Concomitant]
     Active Substance: DULOXETINE
     Indication: Anxiety
  14. PANTOPRAZOLE [Concomitant]
     Active Substance: PANTOPRAZOLE
     Indication: Dyspepsia
     Route: 048
     Dates: start: 20220701
  15. LOPERAMIDE [Concomitant]
     Active Substance: LOPERAMIDE
     Indication: Diarrhoea
     Dosage: TAKE 2 PRN FOR DIARRHEA
     Route: 048
     Dates: start: 20211123
  16. MIRABEGRON [Concomitant]
     Active Substance: MIRABEGRON
     Indication: Hypertonic bladder
     Route: 048
     Dates: start: 20211021
  17. TAMSULOSIN [Concomitant]
     Active Substance: TAMSULOSIN
     Indication: Bladder disorder
     Route: 048
     Dates: start: 20211004
  18. DOCUSATE SODIUM [Concomitant]
     Active Substance: DOCUSATE SODIUM
     Indication: Constipation
     Route: 048
     Dates: start: 20210922

REACTIONS (2)
  - Overdose [Recovered/Resolved]
  - Alanine aminotransferase increased [Recovered/Resolved]

NARRATIVE: CASE EVENT DATE: 20221208
